FAERS Safety Report 5460055-2 (Version None)
Quarter: 2007Q3

REPORT INFORMATION
  Report Type: 
  Country: None (occurrence: None)
  Receive Date: 20070919
  Receipt Date: 20070507
  Transmission Date: 20080115
  Serious: No
  Sender: FDA-Public Use
  Company Number: US-ASTRAZENECA-2007UW10923

PATIENT
  Age: 48 Year
  Sex: Female
  Weight: 90.7 kg

DRUGS (3)
  1. SEROQUEL [Suspect]
     Indication: BIPOLAR DISORDER
     Dosage: 4 DAY DOSE PACK
     Route: 048
     Dates: start: 20070503
  2. ANTIHYPERTENSION [Concomitant]
  3. ENALAPRIL MALEATE [Concomitant]

REACTIONS (1)
  - SEDATION [None]
